FAERS Safety Report 7329686-9 (Version None)
Quarter: 2011Q1

REPORT INFORMATION
  Report Type: 
  Country: None (occurrence: None)
  Receive Date: 20110223
  Receipt Date: 20110211
  Transmission Date: 20110831
  Serious: Yes (Hospitalization)
  Sender: FDA-Public Use
  Company Number: 1000018563

PATIENT
  Age: 84 Year
  Sex: Male
  Weight: 62 kg

DRUGS (8)
  1. PAROXETINE HYDROCHLORIDE [Concomitant]
  2. INIPOMP (PANTOPRAZOLE) (TABLETS) (PANTOPRAZOLE) [Concomitant]
  3. ACRINOR (ACRINOR) (ACRINOR) [Concomitant]
  4. VASTAREL (TRIMETAZIDINE HYDROCHLORIDE) (TABLETS) (TRIMETAZIDINE HYDROC [Concomitant]
  5. XATRAL (ALFUZOSIN) (TABLETS) (ALFUZOSIN) [Concomitant]
  6. MEMANTINE [Suspect]
     Indication: DEMENTIA ALZHEIMER'S TYPE
     Dosage: (10 MG (5 MG, 2 IN 1 D), ORAL) (5 MG (5 MG, 1 IN 1 D), ORAL)
     Route: 048
     Dates: start: 20101021
  7. LEVOTHYROX (LEVOTHYROXINE SODIUM) (TABLETS) (LEVOTHYROXINE SODIUM) [Concomitant]
  8. PRAXINOR (THEODRENALINE HYDROCHLORIDE, CAFEDRINE HYDROCHLORIDE) (TABLE [Concomitant]

REACTIONS (2)
  - AGGRESSION [None]
  - DELIRIUM [None]
